FAERS Safety Report 5833813-X (Version None)
Quarter: 2008Q3

REPORT INFORMATION
  Report Type: 
  Country: None (occurrence: None)
  Receive Date: 20080801
  Receipt Date: 20080801
  Transmission Date: 20090109
  Serious: No
  Sender: FDA-Public Use
  Company Number: None

PATIENT
  Age: 63 Year
  Sex: Male

DRUGS (1)
  1. CLINDAMYCIN HCL [Suspect]
     Indication: DENTAL TREATMENT
     Dosage: 300 MG TID PO
     Route: 048
     Dates: start: 20080628, end: 20080703

REACTIONS (1)
  - RASH [None]
